FAERS Safety Report 10067402 (Version 1)
Quarter: 2014Q2

REPORT INFORMATION
  Report Type: Spontaneous
  Country: US (occurrence: None)
  Receive Date: 20140408
  Receipt Date: 20140408
  Transmission Date: 20141212
  Serious: Yes (Other)
  Sender: FDA-Public Use
  Company Number: None

PATIENT
  Age: 67 Year
  Sex: Male

DRUGS (6)
  1. MARCAINE SPINAL 0.75% + 8.25% DEXTROSE [Suspect]
     Indication: SPINAL ANAESTHESIA
     Dosage: INTRATHECAL
     Dates: start: 20140401
  2. MIDAZOLAM [Concomitant]
  3. FENTANYL [Concomitant]
  4. PROPOFOL [Concomitant]
  5. CEFAZOLIN [Concomitant]
  6. OFIRMEV [Concomitant]

REACTIONS (1)
  - Drug ineffective [None]
